FAERS Safety Report 12318236 (Version 1)
Quarter: 2016Q2

REPORT INFORMATION
  Report Type: Spontaneous
  Country: US (occurrence: US)
  Receive Date: 20160429
  Receipt Date: 20160429
  Transmission Date: 20160815
  Serious: No
  Sender: FDA-Public Use
  Company Number: US-ELI_LILLY_AND_COMPANY-US201604007496

PATIENT
  Sex: Female

DRUGS (6)
  1. HUMATROPE [Suspect]
     Active Substance: SOMATROPIN
     Dosage: 0.2 (UNSPECIFIED), QD
     Route: 065
     Dates: start: 2015
  2. LEVOTHYROXINE. [Concomitant]
     Active Substance: LEVOTHYROXINE
  3. HUMATROPE [Suspect]
     Active Substance: SOMATROPIN
     Dosage: 0.4 (UNSPECIFIED), UNKNOWN
  4. HUMATROPE [Suspect]
     Active Substance: SOMATROPIN
     Indication: HYPOPITUITARISM
     Dosage: 0.5 (UNSPECIFIED), UNKNOWN
     Route: 065
  5. HYDROCORTISONE. [Concomitant]
     Active Substance: HYDROCORTISONE
  6. DESMOPRESSIN [Concomitant]
     Active Substance: DESMOPRESSIN

REACTIONS (2)
  - Incorrect dose administered [Unknown]
  - Underdose [Unknown]
